FAERS Safety Report 5542728-6 (Version None)
Quarter: 2007Q4

REPORT INFORMATION
  Report Type: 
  Country: None (occurrence: None)
  Receive Date: 20071210
  Receipt Date: 20071128
  Transmission Date: 20080405
  Serious: Yes (Other)
  Sender: FDA-Public Use
  Company Number: US-PFIZER INC-2007080576

PATIENT
  Sex: Female
  Weight: 58.1 kg

DRUGS (13)
  1. CHANTIX [Interacting]
     Indication: SMOKING CESSATION THERAPY
  2. PAXIL [Interacting]
  3. CYMBALTA [Suspect]
     Indication: DEPRESSED MOOD
     Dates: start: 20070912, end: 20070917
  4. AMBIEN [Suspect]
  5. VITAMIN B-12 [Concomitant]
  6. OMEGA 3 [Concomitant]
     Dosage: DAILY DOSE:3000MG
  7. GINKO BILOBA [Concomitant]
  8. XANAX [Concomitant]
  9. IMITREX [Concomitant]
  10. PROMETHAZINE [Concomitant]
  11. ACETYLSALICYLIC ACID SRT [Concomitant]
  12. TYLENOL [Concomitant]
  13. SENNOSIDES [Concomitant]

REACTIONS (26)
  - ALCOHOL USE [None]
  - BIPOLAR DISORDER [None]
  - BLOOD PRESSURE INCREASED [None]
  - DELUSION [None]
  - DEPRESSION [None]
  - DRUG INTERACTION [None]
  - DRY SKIN [None]
  - EXCORIATION [None]
  - FATIGUE [None]
  - FEELING COLD [None]
  - FOOD CRAVING [None]
  - HERPES VIRUS INFECTION [None]
  - IMPETIGO [None]
  - INSOMNIA [None]
  - IRRITABILITY [None]
  - NAUSEA [None]
  - NEURODERMATITIS [None]
  - OBSESSIVE-COMPULSIVE DISORDER [None]
  - POLYP [None]
  - PSYCHOMOTOR HYPERACTIVITY [None]
  - RESTLESS LEGS SYNDROME [None]
  - SEPSIS [None]
  - SPEECH DISORDER [None]
  - UNEVALUABLE EVENT [None]
  - URINARY TRACT INFECTION [None]
  - WEIGHT INCREASED [None]
